FAERS Safety Report 7953489-5 (Version None)
Quarter: 2011Q4

REPORT INFORMATION
  Report Type: 
  Country: None (occurrence: None)
  Receive Date: 20111202
  Receipt Date: 20111129
  Transmission Date: 20120403
  Serious: Yes (Life-Threatening, Other)
  Sender: FDA-Public Use
  Company Number: JP-PFIZER INC-2011230165

PATIENT
  Age: 81 Year
  Sex: Female
  Weight: 39 kg

DRUGS (5)
  1. LYRICA [Suspect]
     Indication: PAIN
  2. ARGAMATE [Concomitant]
     Indication: HYPERKALAEMIA
     Dosage: 1 DF, 2X/DAY
     Dates: start: 20110902, end: 20110911
  3. ACETAMINOPHEN [Concomitant]
     Indication: PAIN
     Dosage: 2 DF, 3X/DAY
     Dates: start: 20110915, end: 20111002
  4. LYRICA [Suspect]
     Indication: LUMBAR SPINAL STENOSIS
     Dosage: 25 MG, 1X/DAY
     Route: 048
     Dates: start: 20110926, end: 20111002
  5. ARGAMATE [Concomitant]
     Dosage: 1 DF, 1X/DAY
     Dates: start: 20110912, end: 20110917

REACTIONS (6)
  - BRADYCARDIA [None]
  - BLOOD PRESSURE DECREASED [None]
  - HYPERKALAEMIA [None]
  - PYREXIA [None]
  - RENAL FAILURE ACUTE [None]
  - ARRHYTHMIA [None]
